FAERS Safety Report 5239189-3 (Version None)
Quarter: 2007Q1

REPORT INFORMATION
  Report Type: 
  Country: None (occurrence: None)
  Receive Date: 20070212
  Receipt Date: 20070125
  Transmission Date: 20070707
  Serious: Yes (Other)
  Sender: FDA-Public Use
  Company Number: S07-SWI-00279-01

PATIENT
  Age: 39 Year
  Sex: Female

DRUGS (3)
  1. CIPRALEX (ESCITALOPRAM) [Suspect]
     Indication: DEPRESSION
  2. CLORAZEPATE DIPOTASSIUM [Suspect]
     Indication: DEPRESSION
  3. ALCOHOL (ETHANOL) [Suspect]
     Dates: end: 20060201

REACTIONS (2)
  - DRUG EXPOSURE DURING PREGNANCY [None]
  - PREGNANCY [None]
